FAERS Safety Report 10643327 (Version 1)
Quarter: 2014Q4

REPORT INFORMATION
  Report Type: Report from Study
  Country: US (occurrence: None)
  Receive Date: 20141128
  Receipt Date: 20141128
  Transmission Date: 20150529
  Serious: Yes (Other)
  Sender: FDA-Public Use
  Company Number: 2063793

PATIENT
  Age: 71 Year
  Sex: Male
  Weight: 89.4 kg

DRUGS (7)
  1. (RITUXIMAB) [Suspect]
     Active Substance: RITUXIMAB
     Indication: CHRONIC LYMPHOCYTIC LEUKAEMIA
     Dosage: 375 MG/M 2 MILLIGRAM (S)/SQ.METER (UNKNOWN)
     Dates: start: 20100217, end: 20100217
  2. BACTRIM DS [Suspect]
     Active Substance: SULFAMETHOXAZOLE\TRIMETHOPRIM
  3. TENOFOVIR [Suspect]
     Active Substance: TENOFOVIR
  4. VALTREX [Suspect]
     Active Substance: VALACYCLOVIR HYDROCHLORIDE
  5. (CYCLOPHOSPHAMIDE) [Suspect]
     Active Substance: CYCLOPHOSPHAMIDE
     Indication: CHRONIC LYMPHOCYTIC LEUKAEMIA
     Dosage: 600 MG/M 2 MILLIGRAM(S)/SQ.METER (UNKNOWN)
     Dates: start: 20100217, end: 20100217
  6. CIPROFLOXACIN. [Suspect]
     Active Substance: CIPROFLOXACIN
  7. NIPENT [Suspect]
     Active Substance: PENTOSTATIN
     Indication: CHRONIC LYMPHOCYTIC LEUKAEMIA
     Dosage: 4 MG/M 2 MILLIGRAM(S)/SQ. METER (UNKNOWN)
     Dates: start: 20100217, end: 20100217

REACTIONS (1)
  - Neutrophil count decreased [None]

NARRATIVE: CASE EVENT DATE: 20100324
